FAERS Safety Report 6125660-9 (Version None)
Quarter: 2009Q1

REPORT INFORMATION
  Report Type: 
  Country: None (occurrence: None)
  Receive Date: 20090317
  Receipt Date: 20090312
  Transmission Date: 20090719
  Serious: Yes (Life-Threatening, Hospitalization)
  Sender: FDA-Public Use
  Company Number: GXKR2009DE03086

PATIENT
  Age: 77 Year
  Sex: Female

DRUGS (6)
  1. ACETYLSALICYLIC ACID SRT [Suspect]
     Dosage: 100 MG, QD, ORAL
     Route: 048
     Dates: end: 20080703
  2. FALITHROM (NGX) (PHENPROCOUMON) FILM-COATED TABLET [Suspect]
     Dosage: ORAL
     Route: 048
  3. VERAPAMIL [Suspect]
     Dosage: 60 MG, BID, ORAL
     Route: 048
  4. ARELIX (PIRETANIDE SODIUM) [Concomitant]
  5. DIGOTOXIN (DIGOTOXIN) [Concomitant]
  6. LISINOPIRL (LISINOPRIL) [Concomitant]

REACTIONS (2)
  - GASTRIC ULCER HELICOBACTER [None]
  - GASTROINTESTINAL HAEMORRHAGE [None]
